FAERS Safety Report 24058163 (Version 1)
Quarter: 2024Q3

REPORT INFORMATION
  Report Type: Spontaneous
  Country: US (occurrence: US)
  Receive Date: 20240708
  Receipt Date: 20240708
  Transmission Date: 20241017
  Serious: No
  Sender: JOHNSON AND JOHNSON
  Company Number: US-JNJFOC-20240677544

PATIENT
  Age: 46 Year
  Sex: Female

DRUGS (1)
  1. STELARA [Suspect]
     Active Substance: USTEKINUMAB
     Indication: Product used for unknown indication
     Route: 040
     Dates: start: 20240621

REACTIONS (3)
  - Muscle twitching [Unknown]
  - Vision blurred [Unknown]
  - Pyrexia [Unknown]

NARRATIVE: CASE EVENT DATE: 20240621
